FAERS Safety Report 17880927 (Version 1)
Quarter: 2020Q2

REPORT INFORMATION
  Report Type: Spontaneous
  Country: CN (occurrence: CN)
  Receive Date: 20200610
  Receipt Date: 20200610
  Transmission Date: 20200714
  Serious: Yes (Hospitalization)
  Sender: FDA-Public Use
  Company Number: CN-PFIZER INC-2020222156

PATIENT
  Age: 55 Year
  Sex: Female
  Weight: 45 kg

DRUGS (2)
  1. SOLU-MEDROL [Suspect]
     Active Substance: METHYLPREDNISOLONE SODIUM SUCCINATE
     Indication: NEUROMYELITIS OPTICA SPECTRUM DISORDER
     Dosage: 0.5 G TWICE EVERY TWO DAYS
     Route: 041
     Dates: start: 20200302, end: 20200303
  2. SODIUM CHLORIDE. [Concomitant]
     Active Substance: SODIUM CHLORIDE
     Indication: NEUROMYELITIS OPTICA SPECTRUM DISORDER
     Dosage: 250 ML, TWICE EVERY TWO DAYS
     Route: 041
     Dates: start: 20200302, end: 20200303

REACTIONS (3)
  - Palpitations [Recovering/Resolving]
  - Abdominal pain [Recovering/Resolving]
  - Blood glucose increased [Recovering/Resolving]

NARRATIVE: CASE EVENT DATE: 20200302
